FAERS Safety Report 10143864 (Version 2)
Quarter: 2014Q2

REPORT INFORMATION
  Report Type: Spontaneous
  Country: TW (occurrence: TW)
  Receive Date: 20140430
  Receipt Date: 20140629
  Transmission Date: 20141212
  Serious: Yes (Life-Threatening)
  Sender: FDA-Public Use
  Company Number: TW-ABBVIE-14P-153-1229942-00

PATIENT
  Age: 28 Year
  Sex: Female
  Weight: 47 kg

DRUGS (3)
  1. NIMBEX [Suspect]
     Indication: PRODUCT USED FOR UNKNOWN INDICATION
     Route: 042
     Dates: start: 20140417, end: 20140417
  2. ULTANE [Suspect]
     Indication: PRODUCT USED FOR UNKNOWN INDICATION
     Dates: start: 20140417, end: 20140417
  3. PROPOFOL [Concomitant]
     Indication: PRODUCT USED FOR UNKNOWN INDICATION
     Dates: start: 20140417, end: 20140417

REACTIONS (2)
  - Blood pressure decreased [Recovered/Resolved]
  - Oxygen saturation decreased [Recovered/Resolved]
